FAERS Safety Report 25050523 (Version 1)
Quarter: 2025Q1

REPORT INFORMATION
  Report Type: Report from Study
  Country: CA (occurrence: CA)
  Receive Date: 20250307
  Receipt Date: 20250307
  Transmission Date: 20250408
  Serious: Yes (Hospitalization, Other)
  Sender: SANDOZ
  Company Number: CA-SANDOZ-SDZ2025CA013376

PATIENT
  Sex: Male

DRUGS (1)
  1. HYRIMOZ [Suspect]
     Active Substance: ADALIMUMAB-ADAZ
     Indication: Rheumatoid arthritis
     Dosage: 40 MG, BIW HYRIMOZ 40 MG / 0.8 ML
     Route: 058
     Dates: start: 20250214

REACTIONS (5)
  - Prostatic operation [Recovered/Resolved]
  - Cystitis [Recovering/Resolving]
  - Scrotal infection [Recovering/Resolving]
  - Pyelonephritis [Recovering/Resolving]
  - Inappropriate schedule of product administration [Unknown]
